FAERS Safety Report 16048657 (Version 1)
Quarter: 2019Q1

REPORT INFORMATION
  Report Type: Spontaneous
  Country: US (occurrence: US)
  Receive Date: 20190307
  Receipt Date: 20190307
  Transmission Date: 20190418
  Serious: No
  Sender: FDA-Public Use
  Company Number: US-SA-2019SA061865

PATIENT
  Age: 18 Year
  Sex: Female

DRUGS (1)
  1. NASACORT ALLERGY 24HR [Suspect]
     Active Substance: TRIAMCINOLONE ACETONIDE
     Indication: SEASONAL ALLERGY
     Dosage: 2 SPRAYS TWICE
     Route: 065
     Dates: start: 20190227

REACTIONS (6)
  - Chest discomfort [Unknown]
  - Pruritus [Unknown]
  - Rash generalised [Unknown]
  - Erythema [Unknown]
  - Swelling face [Unknown]
  - Skin tightness [Unknown]
